FAERS Safety Report 8064496-9 (Version None)
Quarter: 2012Q1

REPORT INFORMATION
  Report Type: 
  Country: None (occurrence: None)
  Receive Date: 20120123
  Receipt Date: 20120116
  Transmission Date: 20120608
  Serious: Yes (Hospitalization)
  Sender: FDA-Public Use
  Company Number: US-US-EMD SERONO, INC.-7023322

PATIENT
  Sex: Female

DRUGS (5)
  1. REBIF [Suspect]
     Indication: MULTIPLE SCLEROSIS
     Route: 058
     Dates: start: 20090516, end: 20101001
  2. REBIF [Suspect]
     Route: 058
     Dates: start: 20110901
  3. VITAMIN D [Concomitant]
  4. HIGH BLOOD PRESSURE MEDICATIONS [Concomitant]
     Indication: HYPERTENSION
  5. CLARITIN [Concomitant]

REACTIONS (1)
  - BREAST CANCER [None]
